FAERS Safety Report 25142728 (Version 1)
Quarter: 2025Q1

REPORT INFORMATION
  Report Type: Spontaneous
  Country: FR (occurrence: FR)
  Receive Date: 20250331
  Receipt Date: 20250331
  Transmission Date: 20250409
  Serious: Yes (Other)
  Sender: SK LIFE SCIENCE
  Company Number: FR-ACRAF-2025-037537

PATIENT

DRUGS (1)
  1. XCOPRI [Suspect]
     Active Substance: CENOBAMATE
     Indication: Product used for unknown indication
     Dosage: 200.0 MILLIGRAM(S) (200 MILLIGRAM(S), 1 IN 1 DAY)
     Route: 048
     Dates: start: 202407

REACTIONS (1)
  - Toxic skin eruption [Unknown]

NARRATIVE: CASE EVENT DATE: 20250201
